FAERS Safety Report 17165889 (Version 1)
Quarter: 2019Q4

REPORT INFORMATION
  Report Type: Spontaneous
  Country: AU (occurrence: AU)
  Receive Date: 20191217
  Receipt Date: 20191217
  Transmission Date: 20200122
  Serious: Yes (Death, Hospitalization)
  Sender: FDA-Public Use
  Company Number: AU-TASMAN PHARMA, INC.-2019TSM00127

PATIENT
  Sex: Male

DRUGS (26)
  1. CLOZAPINE. [Suspect]
     Active Substance: CLOZAPINE
     Dosage: 50 MG
     Dates: start: 20170620
  2. CLOZAPINE. [Suspect]
     Active Substance: CLOZAPINE
     Dosage: 125 MG
     Dates: start: 20171012
  3. CLOZAPINE. [Suspect]
     Active Substance: CLOZAPINE
     Dosage: 50 MG
     Dates: start: 20180521
  4. CLOZAPINE. [Suspect]
     Active Substance: CLOZAPINE
     Dosage: 87.5 MG
     Dates: start: 20170627
  5. CLOZAPINE. [Suspect]
     Active Substance: CLOZAPINE
     Dosage: 150 MG
     Dates: start: 20180618
  6. CLOZAPINE. [Suspect]
     Active Substance: CLOZAPINE
     Dosage: 25 MG
     Dates: start: 20170322
  7. CLOZAPINE. [Suspect]
     Active Substance: CLOZAPINE
     Dosage: 100 MG
     Dates: start: 20180604
  8. CLOZAPINE. [Suspect]
     Active Substance: CLOZAPINE
     Dosage: 137.5 MG
     Dates: start: 20190305
  9. CLOZAPINE. [Suspect]
     Active Substance: CLOZAPINE
     Dosage: 137.5 MG
     Dates: start: 20190424
  10. CLOZAPINE. [Suspect]
     Active Substance: CLOZAPINE
     Dosage: 12.5 MG
     Dates: start: 20170609
  11. CLOZAPINE. [Suspect]
     Active Substance: CLOZAPINE
     Dosage: 112.5 MG
     Dates: start: 20170705
  12. CLOZAPINE. [Suspect]
     Active Substance: CLOZAPINE
     Dosage: 150 MG
     Dates: start: 20170712
  13. CLOZAPINE. [Suspect]
     Active Substance: CLOZAPINE
     Dosage: 25 MG
     Dates: start: 20180515
  14. CLOZAPINE. [Suspect]
     Active Substance: CLOZAPINE
     Dosage: 75 MG
     Dates: start: 20180529
  15. CLOZAPINE. [Suspect]
     Active Substance: CLOZAPINE
     Dosage: 137.5 MG
     Dates: start: 20170817
  16. CLOZAPINE. [Suspect]
     Active Substance: CLOZAPINE
     Dosage: 137.5 MG
     Dates: start: 20190523
  17. OLANZAPINE. [Suspect]
     Active Substance: OLANZAPINE
  18. CLOZAPINE. [Suspect]
     Active Substance: CLOZAPINE
     Dosage: 37.5 MG
     Dates: start: 20170616
  19. CLOZAPINE. [Suspect]
     Active Substance: CLOZAPINE
     Dosage: 125 MG
     Dates: start: 20180612
  20. BENZTROPINE. [Suspect]
     Active Substance: BENZTROPINE
  21. CLOZAPINE. [Suspect]
     Active Substance: CLOZAPINE
     Dosage: 150 MG
     Dates: start: 20190930, end: 20191201
  22. CLOZAPINE. [Suspect]
     Active Substance: CLOZAPINE
     Dosage: 12.5 MG
     Dates: start: 20180507
  23. CLOZAPINE. [Suspect]
     Active Substance: CLOZAPINE
     Dosage: 150 MG
     Dates: start: 20190903
  24. CLOZAPINE. [Suspect]
     Active Substance: CLOZAPINE
     Dosage: 75 MG
     Dates: start: 20170329, end: 20170405
  25. CLOZAPINE. [Suspect]
     Active Substance: CLOZAPINE
     Dosage: 150 MG
     Dates: start: 20190328
  26. CLOZAPINE. [Suspect]
     Active Substance: CLOZAPINE
     Dosage: 137.5 MG
     Dates: start: 20190515

REACTIONS (3)
  - Neuroleptic malignant syndrome [Recovering/Resolving]
  - Death [Fatal]
  - Toxicity to various agents [Recovering/Resolving]

NARRATIVE: CASE EVENT DATE: 201704
